FAERS Safety Report 8008780-3 (Version None)
Quarter: 2011Q4

REPORT INFORMATION
  Report Type: 
  Country: None (occurrence: None)
  Receive Date: 20111227
  Receipt Date: 20111222
  Transmission Date: 20120403
  Serious: Yes (Hospitalization)
  Sender: FDA-Public Use
  Company Number: GB-AMGEN-GBRCT2011067695

PATIENT
  Age: 76 Year
  Sex: Female

DRUGS (10)
  1. ADCAL D3 [Concomitant]
     Dosage: UNK
     Route: 048
  2. METHOTREXATE [Concomitant]
     Dosage: UNK
     Dates: start: 20111214
  3. ACETAMINOPHEN [Concomitant]
     Dosage: 500 MG, PRN
     Route: 048
  4. RAMIPRIL [Concomitant]
     Dosage: 2.5 MG, UNK
     Route: 048
  5. FLUOROURACIL [Concomitant]
     Dosage: UNK
     Dates: start: 20111214
  6. AMLODIPINE [Concomitant]
     Dosage: 10 MG, UNK
     Route: 048
  7. DENOSUMAB [Suspect]
     Indication: BREAST CANCER
     Dosage: 120 MG, Q3MO
     Route: 058
     Dates: start: 20110803
  8. CYCLOPHOSPHAMIDE [Concomitant]
     Dosage: UNK
     Dates: start: 20111214
  9. METFORMIN [Concomitant]
     Dosage: 500 MG, BID
     Route: 048
  10. LEVOTHYROXINE SODIUM [Concomitant]
     Dosage: 25 MG, UNK
     Route: 048

REACTIONS (1)
  - DIVERTICULITIS [None]
